FAERS Safety Report 16733556 (Version 1)
Quarter: 2019Q3

REPORT INFORMATION
  Report Type: Other
  Country: IT (occurrence: IT)
  Receive Date: 20190823
  Receipt Date: 20190823
  Transmission Date: 20191005
  Serious: Yes (Death, Other)
  Sender: FDA-Public Use
  Company Number: IT-TECHNOMED INC.-2073555

PATIENT
  Sex: Female

DRUGS (1)
  1. CATAPRESAN TTS [Suspect]
     Active Substance: CLONIDINE
     Indication: HYPEREMESIS GRAVIDARUM
     Route: 062

REACTIONS (2)
  - Off label use [Unknown]
  - Fatty acid oxidation disorder [Fatal]
